FAERS Safety Report 22108956 (Version 1)
Quarter: 2023Q1

REPORT INFORMATION
  Report Type: Spontaneous
  Country: US (occurrence: US)
  Receive Date: 20230317
  Receipt Date: 20230317
  Transmission Date: 20230418
  Serious: No
  Sender: FDA-Public Use
  Company Number: US-GSKCCFUS-Case-01647952_AE-93027

PATIENT
  Sex: Female

DRUGS (1)
  1. NUCALA [Suspect]
     Active Substance: MEPOLIZUMAB
     Indication: Asthma
     Dosage: UNK, Z, EVERY 4 WEEKS
     Route: 058

REACTIONS (3)
  - Product dose omission issue [Unknown]
  - Product dispensing issue [Unknown]
  - Circumstance or information capable of leading to medication error [Unknown]
